FAERS Safety Report 17038886 (Version 1)
Quarter: 2019Q4

REPORT INFORMATION
  Report Type: Report from Study
  Country: GB (occurrence: GB)
  Receive Date: 20191115
  Receipt Date: 20191115
  Transmission Date: 20200122
  Serious: Yes (Hospitalization)
  Sender: FDA-Public Use
  Company Number: GB-BAUSCH-BL-2019-061272

PATIENT
  Age: 65 Year
  Sex: Female

DRUGS (1)
  1. KYNTHEUM [Suspect]
     Active Substance: BRODALUMAB
     Indication: PSORIASIS
     Dosage: 210 MG AT WEEKS 0, 1, 2 FOLLOWED BY EVERY 2 WEEKS
     Route: 058
     Dates: start: 20190123, end: 2019

REACTIONS (2)
  - Therapy cessation [Unknown]
  - Surgery [Unknown]
